FAERS Safety Report 7196384-4 (Version None)
Quarter: 2010Q4

REPORT INFORMATION
  Report Type: 
  Country: None (occurrence: None)
  Receive Date: 20101223
  Receipt Date: 20101022
  Transmission Date: 20110411
  Serious: No
  Sender: FDA-Public Use
  Company Number: US-AMGEN-USASP2010001358

PATIENT

DRUGS (1)
  1. ENBREL [Suspect]
     Indication: JUVENILE ARTHRITIS
     Dosage: 50 MG, QWK
     Dates: start: 20091104

REACTIONS (6)
  - FATIGUE [None]
  - HEADACHE [None]
  - INCORRECT STORAGE OF DRUG [None]
  - JOINT STIFFNESS [None]
  - OROPHARYNGEAL PAIN [None]
  - SINUS CONGESTION [None]
